FAERS Safety Report 5206575-7 (Version None)
Quarter: 2007Q1

REPORT INFORMATION
  Report Type: 
  Country: None (occurrence: None)
  Receive Date: 20070111
  Receipt Date: 20061230
  Transmission Date: 20070707
  Serious: Yes (Other)
  Sender: FDA-Public Use
  Company Number: US-MERCK-0701USA01041

PATIENT
  Age: 23 Year
  Sex: Female

DRUGS (4)
  1. PEPCID AC [Suspect]
     Indication: ABDOMINAL PAIN
     Route: 048
     Dates: start: 20061230, end: 20061230
  2. PEPCID [Suspect]
     Indication: STRESS ULCER
     Route: 048
  3. PEPTO-BISMOL [Concomitant]
     Route: 048
     Dates: start: 20061230, end: 20061230
  4. ORTHO EVRA [Concomitant]
     Route: 065

REACTIONS (4)
  - DIARRHOEA [None]
  - PALLOR [None]
  - UNRESPONSIVE TO STIMULI [None]
  - VOMITING [None]
